FAERS Safety Report 6546158-X (Version None)
Quarter: 2010Q1

REPORT INFORMATION
  Report Type: 
  Country: None (occurrence: None)
  Receive Date: 20100122
  Receipt Date: 20100113
  Transmission Date: 20100710
  Serious: Yes (Life-Threatening, Hospitalization, Other)
  Sender: FDA-Public Use
  Company Number: DE-RANBAXY-2010RR-30450

PATIENT
  Age: 28 Year
  Sex: Female
  Weight: 30 kg

DRUGS (3)
  1. FLUOXETINE [Suspect]
     Dosage: UNK
     Route: 048
     Dates: start: 20080701, end: 20091009
  2. ZYPREXA [Suspect]
     Dosage: UNK
     Route: 048
     Dates: start: 20090601, end: 20091010
  3. ATOSIL [Suspect]
     Dosage: UNK
     Route: 048
     Dates: start: 20080701, end: 20091009

REACTIONS (1)
  - LONG QT SYNDROME [None]
